FAERS Safety Report 6767180-4 (Version None)
Quarter: 2010Q2

REPORT INFORMATION
  Report Type: 
  Country: None (occurrence: None)
  Receive Date: 20100614
  Receipt Date: 20100605
  Transmission Date: 20101027
  Serious: Yes (Other)
  Sender: FDA-Public Use
  Company Number: US-JNJFOC-20100602384

PATIENT
  Age: 42 Year
  Sex: Female

DRUGS (4)
  1. MONISTAT 1 UNSPECIFIED [Suspect]
     Route: 067
  2. MONISTAT 1 UNSPECIFIED [Suspect]
     Indication: DRUG USE FOR UNKNOWN INDICATION
     Route: 067
  3. MONISTAT 1 UNSPECIFIED [Suspect]
     Route: 061
  4. MONISTAT 1 UNSPECIFIED [Suspect]
     Route: 061

REACTIONS (2)
  - HAEMORRHAGE URINARY TRACT [None]
  - VAGINAL HAEMORRHAGE [None]
